FAERS Safety Report 5625526-4 (Version None)
Quarter: 2008Q1

REPORT INFORMATION
  Report Type: 
  Country: None (occurrence: None)
  Receive Date: 20080211
  Receipt Date: 20080211
  Transmission Date: 20080703
  Serious: Yes (Other)
  Sender: FDA-Public Use
  Company Number: None

PATIENT
  Age: 43 Year
  Sex: Female
  Weight: 61.6892 kg

DRUGS (2)
  1. SUPHEDRINE PE SINUS HEADACHE    EQUATE [Suspect]
     Indication: HEADACHE
     Dosage: TWO CAPLETS EVERY FOUR HOURS PO
     Route: 048
     Dates: start: 20070312, end: 20071212
  2. SUPHEDRINE PE SINUS HEADACHE    EQUATE [Suspect]
     Indication: SINUS CONGESTION
     Dosage: TWO CAPLETS EVERY FOUR HOURS PO
     Route: 048
     Dates: start: 20070312, end: 20071212

REACTIONS (5)
  - CHILLS [None]
  - DIARRHOEA [None]
  - DIZZINESS [None]
  - NO THERAPEUTIC RESPONSE [None]
  - VOMITING [None]
